FAERS Safety Report 21212539 (Version 1)
Quarter: 2022Q3

REPORT INFORMATION
  Report Type: Spontaneous
  Country: US (occurrence: None)
  Receive Date: 20220814
  Receipt Date: 20220814
  Transmission Date: 20221026
  Serious: Yes (Other)
  Sender: FDA-Public Use
  Company Number: None

PATIENT
  Age: 65 Year
  Sex: Female
  Weight: 114.75 kg

DRUGS (1)
  1. ZOLEDRONIC ACID [Suspect]
     Active Substance: ZOLEDRONIC ACID
     Indication: Osteopenia
     Route: 042

REACTIONS (5)
  - Myalgia [None]
  - Illness [None]
  - Hypophagia [None]
  - Gait inability [None]
  - Peripheral swelling [None]

NARRATIVE: CASE EVENT DATE: 20220802
